FAERS Safety Report 19877896 (Version 1)
Quarter: 2021Q3

REPORT INFORMATION
  Report Type: Spontaneous
  Country: US (occurrence: US)
  Receive Date: 20210923
  Receipt Date: 20210923
  Transmission Date: 20211014
  Serious: No
  Sender: FDA-Public Use
  Company Number: US-INSUD PHARMA-2109US00967

PATIENT

DRUGS (1)
  1. PROGESTERONE. [Suspect]
     Active Substance: PROGESTERONE
     Indication: HORMONE LEVEL ABNORMAL
     Dosage: 100 MILLIGRAM DAILY
     Route: 048
     Dates: start: 202012

REACTIONS (2)
  - Hot flush [Not Recovered/Not Resolved]
  - Anxiety [Not Recovered/Not Resolved]

NARRATIVE: CASE EVENT DATE: 202012
